FAERS Safety Report 25548347 (Version 4)
Quarter: 2025Q3

REPORT INFORMATION
  Report Type: Spontaneous
  Country: MY (occurrence: MY)
  Receive Date: 20250714
  Receipt Date: 20250811
  Transmission Date: 20251020
  Serious: Yes (Other)
  Sender: ACCORD
  Company Number: MY-SANDOZ-SDZ2025MY044855

PATIENT
  Age: 70 Year
  Sex: Female
  Weight: 57 kg

DRUGS (2)
  1. ATORVASTATIN [Suspect]
     Active Substance: ATORVASTATIN
     Indication: Dyslipidaemia
     Route: 048
     Dates: start: 202301, end: 202304
  2. SIMVASTATIN [Suspect]
     Active Substance: SIMVASTATIN
     Indication: Dyslipidaemia
     Dates: start: 202308, end: 2023

REACTIONS (4)
  - Primary biliary cholangitis [Recovered/Resolved]
  - Autoimmune hepatitis [Recovered/Resolved]
  - Overlap syndrome [Recovered/Resolved]
  - Condition aggravated [Recovered/Resolved]

NARRATIVE: CASE EVENT DATE: 20230101
